FAERS Safety Report 5889636-9 (Version None)
Quarter: 2008Q3

REPORT INFORMATION
  Report Type: 
  Country: None (occurrence: None)
  Receive Date: 20080919
  Receipt Date: 20080913
  Transmission Date: 20090109
  Serious: Yes (Hospitalization)
  Sender: FDA-Public Use
  Company Number: B0537722A

PATIENT
  Age: 30 Year
  Sex: Male

DRUGS (1)
  1. RANITIDINE [Suspect]
     Indication: ABDOMINAL PAIN
     Route: 048
     Dates: start: 20080601, end: 20080601

REACTIONS (5)
  - CHOLELITHIASIS [None]
  - CHOLESTASIS [None]
  - JAUNDICE [None]
  - PAIN [None]
  - PRURITUS [None]
